FAERS Safety Report 22592583 (Version 1)
Quarter: 2023Q2

REPORT INFORMATION
  Report Type: Spontaneous
  Country: US (occurrence: US)
  Receive Date: 20230613
  Receipt Date: 20230613
  Transmission Date: 20230722
  Serious: Yes (Hospitalization)
  Sender: FDA-Public Use
  Company Number: US-RISINGPHARMA-US-2023RISSPO00086

PATIENT
  Sex: Male

DRUGS (8)
  1. VERAPAMIL HYDROCHLORIDE [Suspect]
     Active Substance: VERAPAMIL HYDROCHLORIDE
     Indication: Ventricular extrasystoles
     Route: 065
  2. VERAPAMIL HYDROCHLORIDE [Suspect]
     Active Substance: VERAPAMIL HYDROCHLORIDE
     Indication: Ventricular tachycardia
  3. PROPRANOLOL [Suspect]
     Active Substance: PROPRANOLOL HYDROCHLORIDE
     Indication: Ventricular extrasystoles
     Route: 065
  4. SOTALOL [Suspect]
     Active Substance: SOTALOL
     Indication: Ventricular extrasystoles
     Route: 065
  5. BISOPROLOL [Suspect]
     Active Substance: BISOPROLOL
     Indication: Ventricular extrasystoles
     Route: 065
  6. MEXILETINE [Suspect]
     Active Substance: MEXILETINE
     Indication: Ventricular extrasystoles
     Route: 065
  7. PILSICAINIDE [Suspect]
     Active Substance: PILSICAINIDE
     Indication: Ventricular extrasystoles
     Route: 065
  8. BEPRIDIL [Suspect]
     Active Substance: BEPRIDIL
     Indication: Ventricular extrasystoles
     Route: 065

REACTIONS (2)
  - Treatment failure [Unknown]
  - Off label use [Unknown]
